FAERS Safety Report 21268563 (Version 1)
Quarter: 2022Q3

REPORT INFORMATION
  Report Type: Spontaneous
  Country: BR (occurrence: BR)
  Receive Date: 20220830
  Receipt Date: 20220830
  Transmission Date: 20221027
  Serious: No
  Sender: FDA-Public Use
  Company Number: BR-LUPIN PHARMACEUTICALS INC.-2022-10677

PATIENT
  Age: 84 Year
  Sex: Female

DRUGS (9)
  1. PREGABALIN [Suspect]
     Active Substance: PREGABALIN
     Indication: Pain
     Dosage: 75 MG, QD (IN THE EVENING)
     Route: 048
     Dates: start: 20220708, end: 20220721
  2. LOSARTAN [Concomitant]
     Active Substance: LOSARTAN
     Indication: Hypertension
     Dosage: UNK, BID (MORE THAN 10 YEARS)
     Route: 048
  3. HYDROCHLOROTHIAZIDE [Concomitant]
     Active Substance: HYDROCHLOROTHIAZIDE
     Indication: Hypertension
     Dosage: 1 DOSAGE FORM, QD 1 PILL IN THE MORNING) (MORE THAN 10 YEARS)
     Route: 048
  4. OMEPRAZOLE [Concomitant]
     Active Substance: OMEPRAZOLE
     Indication: Gastritis
     Dosage: 1 DOSAGE FORM, QD (1 DF,1 PILL IN THE MORNING) (MORE THAN 10 YEARS))
     Route: 048
  5. PURAN [Concomitant]
     Active Substance: LEVOTHYROXINE SODIUM
     Indication: Hypothyroidism
     Dosage: 1 DOSAGE FORM, QD, (1 DF,1 PILL IN THE MORNING) (MORE THAN 10 YEARS)
     Route: 048
  6. BETAHISTINE [Concomitant]
     Active Substance: BETAHISTINE
     Indication: Labyrinthitis
     Dosage: 1 DOSAGE FORM, QD (1 DF,1 PILL IN THE MORNING) (MORE THAN 10 YEARS)
     Route: 048
  7. PAROXETINE [Concomitant]
     Active Substance: PAROXETINE
     Indication: Anxiety
     Dosage: 1 DOSAGE FORM, QD (1 DF,1 PILL IN THE MORNING) (MORE THAN 10 YEARS)
     Route: 048
  8. SIMVASTATIN [Concomitant]
     Active Substance: SIMVASTATIN
     Indication: Blood cholesterol abnormal
     Dosage: 1 DOSAGE FORM, QD (1 DF,1 PILL IN THE NIGHT) (MORE THAN 10 YEARS))
     Route: 048
  9. COLECALCIFEROL;COLLAGEN [Concomitant]
     Indication: Supplementation therapy
     Dosage: 1 DOSAGE FORM, QD (1 DF,1 PILL IN THE LUNCH) (MORE THAN 10 YEARS)
     Route: 048

REACTIONS (2)
  - Muscular weakness [Recovered/Resolved]
  - Dizziness [Recovered/Resolved]

NARRATIVE: CASE EVENT DATE: 20220709
